FAERS Safety Report 21862681 (Version 2)
Quarter: 2024Q1

REPORT INFORMATION
  Report Type: Spontaneous
  Country: US (occurrence: US)
  Receive Date: 20230114
  Receipt Date: 20240220
  Transmission Date: 20240409
  Serious: No
  Sender: FDA-Public Use
  Company Number: US-ELI_LILLY_AND_COMPANY-US202301004196

PATIENT
  Age: 49 Year
  Sex: Female

DRUGS (10)
  1. MOUNJARO [Suspect]
     Active Substance: TIRZEPATIDE
     Indication: Weight decreased
     Dosage: 5 MG, UNKNOWN
     Route: 065
  2. MOUNJARO [Suspect]
     Active Substance: TIRZEPATIDE
     Indication: Weight decreased
     Dosage: 5 MG, UNKNOWN
     Route: 065
  3. MOUNJARO [Suspect]
     Active Substance: TIRZEPATIDE
     Indication: Weight decreased
     Dosage: 5 MG, UNKNOWN
     Route: 065
  4. MOUNJARO [Suspect]
     Active Substance: TIRZEPATIDE
     Indication: Weight decreased
     Dosage: 5 MG, UNKNOWN
     Route: 065
  5. MOUNJARO [Suspect]
     Active Substance: TIRZEPATIDE
     Indication: Weight decreased
     Dosage: 5 MG, UNKNOWN
     Route: 065
  6. MOUNJARO [Suspect]
     Active Substance: TIRZEPATIDE
     Indication: Dandruff
  7. MOUNJARO [Suspect]
     Active Substance: TIRZEPATIDE
     Indication: Dandruff
  8. MOUNJARO [Suspect]
     Active Substance: TIRZEPATIDE
     Indication: Dandruff
  9. MOUNJARO [Suspect]
     Active Substance: TIRZEPATIDE
     Indication: Dandruff
  10. MOUNJARO [Suspect]
     Active Substance: TIRZEPATIDE
     Indication: Dandruff

REACTIONS (3)
  - Pruritus [Unknown]
  - Off label use [Unknown]
  - Product dose omission issue [Unknown]
